FAERS Safety Report 20979900 (Version 1)
Quarter: 2022Q2

REPORT INFORMATION
  Report Type: Spontaneous
  Country: US (occurrence: US)
  Receive Date: 20220620
  Receipt Date: 20220620
  Transmission Date: 20220720
  Serious: No
  Sender: FDA-Public Use
  Company Number: US-BIOGEN-2022BI01133211

PATIENT
  Sex: Female

DRUGS (2)
  1. TYSABRI [Suspect]
     Active Substance: NATALIZUMAB
     Indication: Multiple sclerosis
     Dates: start: 20201222
  2. TYSABRI [Suspect]
     Active Substance: NATALIZUMAB
     Dates: start: 20070525, end: 20191203

REACTIONS (2)
  - Inappropriate schedule of product administration [Unknown]
  - Feeling hot [Unknown]
